FAERS Safety Report 10986428 (Version 1)
Quarter: 2015Q1

REPORT INFORMATION
  Report Type: Spontaneous
  Country: US (occurrence: None)
  Receive Date: 20150320
  Receipt Date: 20150320
  Transmission Date: 20150721
  Serious: Yes (Hospitalization)
  Sender: FDA-Public Use
  Company Number: M123-PR-1410C-0013

PATIENT
  Age: 85 Year
  Sex: Male

DRUGS (8)
  1. MYOVIEW [Suspect]
     Active Substance: TECHNETIUM TC-99M TETROFOSMIN\TETROFOSMIN
     Indication: DIAGNOSTIC PROCEDURE
     Route: 042
     Dates: start: 20140926, end: 20140926
  2. MAGNESIUM [Concomitant]
     Active Substance: MAGNESIUM
  3. SIMVASTATIN. [Concomitant]
     Active Substance: SIMVASTATIN
  4. ASPIR81 (ACETYLSALICYLIC) [Concomitant]
  5. CARVEDILOL. [Concomitant]
     Active Substance: CARVEDILOL
  6. MELOXICAM. [Concomitant]
     Active Substance: MELOXICAM
  7. LOSARTAN POTASSIUM. [Concomitant]
     Active Substance: LOSARTAN POTASSIUM
  8. MYOVIEW [Suspect]
     Active Substance: TECHNETIUM TC-99M TETROFOSMIN\TETROFOSMIN
     Indication: PRODUCT USED FOR UNKNOWN INDICATION
     Route: 042
     Dates: start: 20140926, end: 20140926

REACTIONS (2)
  - Pulmonary oedema [None]
  - Cough [None]

NARRATIVE: CASE EVENT DATE: 20140926
